FAERS Safety Report 13427143 (Version 1)
Quarter: 2017Q2

REPORT INFORMATION
  Report Type: Spontaneous
  Country: US (occurrence: US)
  Receive Date: 20170411
  Receipt Date: 20170411
  Transmission Date: 20170830
  Serious: Yes (Hospitalization)
  Sender: FDA-Public Use
  Company Number: None

PATIENT
  Age: 77 Year
  Sex: Male
  Weight: 104 kg

DRUGS (1)
  1. AMIODARONE [Suspect]
     Active Substance: AMIODARONE
     Indication: ATRIAL FIBRILLATION
     Route: 042
     Dates: start: 20160811, end: 20160812

REACTIONS (4)
  - Drug-induced liver injury [None]
  - Transaminases increased [None]
  - Ischaemic hepatitis [None]
  - Hypotension [None]

NARRATIVE: CASE EVENT DATE: 20161019
